FAERS Safety Report 14154113 (Version 2)
Quarter: 2018Q1

REPORT INFORMATION
  Report Type: Report from Study
  Country: CN (occurrence: CN)
  Receive Date: 20171102
  Receipt Date: 20180130
  Transmission Date: 20180508
  Serious: Yes (Death, Other)
  Sender: FDA-Public Use
  Company Number: CN-TAKEDA-2017MPI009629

PATIENT
  Age: 66 Year
  Sex: Male
  Weight: 53 kg

DRUGS (9)
  1. VELCADE [Suspect]
     Active Substance: BORTEZOMIB
     Dosage: 2.1 MG, UNK
     Route: 065
     Dates: start: 20150929, end: 20151228
  2. VELCADE [Suspect]
     Active Substance: BORTEZOMIB
     Indication: MANTLE CELL LYMPHOMA
     Dosage: 2.1 MG, UNK
     Route: 065
     Dates: start: 20150724, end: 20150905
  3. METHYLPREDNISOLONE. [Concomitant]
     Active Substance: METHYLPREDNISOLONE
     Indication: MANTLE CELL LYMPHOMA
     Dosage: 60 MG, UNK
     Route: 065
     Dates: start: 20170302
  4. PIRARUBICIN [Suspect]
     Active Substance: PIRARUBICIN
     Indication: MANTLE CELL LYMPHOMA
     Dosage: 24 MG, UNK
     Route: 065
     Dates: start: 20170302
  5. ETOPOSIDE. [Concomitant]
     Active Substance: ETOPOSIDE
     Indication: MANTLE CELL LYMPHOMA
     Dosage: 100 MG, UNK
     Route: 065
     Dates: start: 20170302
  6. CYCLOPHOSPHAMIDE. [Concomitant]
     Active Substance: CYCLOPHOSPHAMIDE
     Indication: MANTLE CELL LYMPHOMA
     Dosage: UNK
     Route: 065
     Dates: start: 20170302
  7. VELCADE [Suspect]
     Active Substance: BORTEZOMIB
     Dosage: 2.6 MG, UNK
     Route: 065
     Dates: start: 20160208, end: 20161216
  8. VELCADE [Suspect]
     Active Substance: BORTEZOMIB
     Dosage: 2.56 MG, 2/WEEK
     Route: 065
     Dates: start: 20160124, end: 20170312
  9. VINDESINE [Concomitant]
     Active Substance: VINDESINE
     Indication: MANTLE CELL LYMPHOMA
     Dosage: 4 MG, UNK
     Route: 065
     Dates: start: 20170302

REACTIONS (14)
  - Nausea [Recovered/Resolved]
  - Vomiting [Recovered/Resolved]
  - Myocardial infarction [Fatal]
  - Toothache [Recovered/Resolved]
  - Constipation [Recovered/Resolved]
  - Dyspnoea [Unknown]
  - Gastrointestinal haemorrhage [Recovered/Resolved]
  - Diarrhoea [Recovered/Resolved]
  - Pyrexia [Recovered/Resolved]
  - Asthenia [Recovered/Resolved]
  - Pneumonia [Unknown]
  - Lung infection [Recovered/Resolved]
  - Paraesthesia [Recovered/Resolved]
  - Productive cough [Recovering/Resolving]

NARRATIVE: CASE EVENT DATE: 20160603
